FAERS Safety Report 4479338-8 (Version None)
Quarter: 2004Q4

REPORT INFORMATION
  Report Type: 
  Country: None (occurrence: None)
  Receive Date: 20041019
  Receipt Date: 20041019
  Transmission Date: 20050328
  Serious: Yes (Other)
  Sender: FDA-Public Use
  Company Number: None

PATIENT
  Sex: Male
  Weight: 34.8 kg

DRUGS (9)
  1. PANTOPRAZOLE [Suspect]
     Indication: GASTROOESOPHAGEAL REFLUX DISEASE
     Dosage: 40 MG IV DAILY
     Route: 042
     Dates: start: 20040531
  2. DIAZEPAM [Concomitant]
  3. DOCUSATES [Concomitant]
  4. FAMOTIDINE [Concomitant]
  5. HEPARIN [Concomitant]
  6. MAGNESIUM/ALUMINUM [Concomitant]
  7. OXYCODONE [Concomitant]
  8. ROBEPRAZOLE [Concomitant]
  9. TIZANIDINE HCL [Concomitant]

REACTIONS (3)
  - CHILLS [None]
  - ERYTHEMA [None]
  - TREMOR [None]
